FAERS Safety Report 6715514-9 (Version None)
Quarter: 2010Q2

REPORT INFORMATION
  Report Type: 
  Country: None (occurrence: None)
  Receive Date: 20100506
  Receipt Date: 20100506
  Transmission Date: 20101027
  Serious: Yes (Other)
  Sender: FDA-Public Use
  Company Number: None

PATIENT
  Age: 58 Year
  Sex: Female
  Weight: 77.1 kg

DRUGS (9)
  1. METHADONE HCL [Suspect]
     Indication: PAIN
     Dosage: 20MG Q6HOURS PO
     Route: 048
  2. HYDROMORPHONE HCL [Suspect]
     Indication: PAIN
     Dosage: 2MG Q2HOUR IV
     Route: 042
  3. HEPARIN [Concomitant]
  4. CALCIUM ACETATE [Concomitant]
  5. CLINDAMYCIN [Concomitant]
  6. DOCUSATE [Concomitant]
  7. DOXEPIN HCL [Concomitant]
  8. FISH OIL [Concomitant]
  9. M.V.I. [Concomitant]

REACTIONS (1)
  - RESPIRATORY DISTRESS [None]
